FAERS Safety Report 15742313 (Version 3)
Quarter: 2020Q1

REPORT INFORMATION
  Report Type: Spontaneous
  Country: JP (occurrence: JP)
  Receive Date: 20181219
  Receipt Date: 20200130
  Transmission Date: 20200409
  Serious: Yes (Other)
  Sender: FDA-Public Use
  Company Number: JP-PFIZER INC-2018388963

PATIENT
  Age: 6 Decade
  Sex: Male

DRUGS (5)
  1. INLYTA [Suspect]
     Active Substance: AXITINIB
     Dosage: 20 MG, DAILY
  2. INLYTA [Suspect]
     Active Substance: AXITINIB
     Indication: RENAL CELL CARCINOMA
     Dosage: UNK
  3. INLYTA [Suspect]
     Active Substance: AXITINIB
     Dosage: UNK
     Dates: start: 201912
  4. INLYTA [Suspect]
     Active Substance: AXITINIB
     Dosage: 16 MG, UNK
  5. NIVOLUMAB [Concomitant]
     Active Substance: NIVOLUMAB
     Dosage: UNK

REACTIONS (6)
  - Bronchopulmonary aspergillosis [Unknown]
  - Malaise [Unknown]
  - Fatigue [Recovering/Resolving]
  - Neoplasm progression [Unknown]
  - Diarrhoea [Unknown]
  - Lymphadenopathy [Unknown]
